FAERS Safety Report 15207404 (Version 2)
Quarter: 2018Q4

REPORT INFORMATION
  Report Type: Spontaneous
  Country: US (occurrence: US)
  Receive Date: 20180727
  Receipt Date: 20181005
  Transmission Date: 20190204
  Serious: Yes (Other)
  Sender: FDA-Public Use
  Company Number: US-BAYER-2018-137792

PATIENT
  Age: 32 Year
  Sex: Female
  Weight: 172.79 kg

DRUGS (1)
  1. MIRENA [Suspect]
     Active Substance: LEVONORGESTREL
     Dosage: 20 MCG/24HR, CONT
     Route: 015
     Dates: start: 20130516

REACTIONS (3)
  - Pregnancy with contraceptive device [Not Recovered/Not Resolved]
  - Drug ineffective [None]
  - Device expulsion [None]
